FAERS Safety Report 13407111 (Version 2)
Quarter: 2018Q2

REPORT INFORMATION
  Report Type: Report from Study
  Country: BR (occurrence: BR)
  Receive Date: 20170405
  Receipt Date: 20180518
  Transmission Date: 20180711
  Serious: Yes (Other)
  Sender: FDA-Public Use
  Company Number: PHHY2017BR051155

PATIENT
  Sex: Female
  Weight: 82 kg

DRUGS (7)
  1. JANUMET [Concomitant]
     Active Substance: METFORMIN HYDROCHLORIDE\SITAGLIPTIN PHOSPHATE
     Indication: DIABETES MELLITUS
     Dosage: 1 DF (50/1000), BID (1 IN THE LUNCH AND 1 IN THE DINNER)
     Route: 065
  2. DIOVAN AMLO FIX [Suspect]
     Active Substance: AMLODIPINE\VALSARTAN
     Indication: HYPERTENSION
     Dosage: 1 DF (AMLODIPINE 5 MG, VALSARTAN 160 MG), QD (IN THE MORNING)
     Route: 048
  3. MOTILIUM [Concomitant]
     Active Substance: DOMPERIDONE
     Indication: CHRONIC GASTRITIS
     Dosage: 10 MG, UNK (3 YEARS AGO)
     Route: 065
  4. INDAPEN [Concomitant]
     Active Substance: INDAPAMIDE
     Indication: HYPERTENSION
     Dosage: 1.5 MG, UNK (2 YEARS AGO)
     Route: 065
  5. VYTORIN [Concomitant]
     Active Substance: EZETIMIBE\SIMVASTATIN
     Indication: BLOOD CHOLESTEROL INCREASED
     Dosage: (10 TO 20 MG)
     Route: 065
  6. LANICOR [Concomitant]
     Active Substance: DIGOXIN
     Indication: DIABETES MELLITUS
     Dosage: 50 MG, UNK
     Route: 065
  7. ESOMEPRAZOLE [Concomitant]
     Active Substance: ESOMEPRAZOLE
     Indication: CHRONIC GASTRITIS
     Dosage: 40 MG, UNK (2 YEARS AGO)
     Route: 065

REACTIONS (6)
  - Vomiting [Not Recovered/Not Resolved]
  - Fatigue [Not Recovered/Not Resolved]
  - Oedema peripheral [Not Recovered/Not Resolved]
  - Blood glucose increased [Not Recovered/Not Resolved]
  - Pain [Not Recovered/Not Resolved]
  - Retching [Unknown]
